FAERS Safety Report 4400871-9 (Version None)
Quarter: 2004Q3

REPORT INFORMATION
  Report Type: 
  Country: None (occurrence: None)
  Receive Date: 20040907
  Receipt Date: 20030711
  Transmission Date: 20050211
  Serious: No
  Sender: FDA-Public Use
  Company Number: US-BRISTOL-MYERS SQUIBB COMPANY-12325916

PATIENT
  Age: 87 Year
  Sex: Female
  Weight: 63 kg

DRUGS (4)
  1. COUMADIN [Suspect]
     Indication: ATRIAL FIBRILLATION
     Dosage: 1.25 MG SIX TIMES A WEEK ALTERNATING WITH 2.5 MG ON MONDAY
     Route: 048
     Dates: start: 20030201
  2. LANOXIN [Concomitant]
  3. AVAPRO [Concomitant]
  4. FUROSEMIDE [Concomitant]

REACTIONS (2)
  - PAIN IN EXTREMITY [None]
  - SWELLING [None]
